FAERS Safety Report 15016659 (Version 1)
Quarter: 2018Q2

REPORT INFORMATION
  Report Type: Spontaneous
  Country: AU (occurrence: AU)
  Receive Date: 20180615
  Receipt Date: 20180615
  Transmission Date: 20180711
  Serious: Yes (Other)
  Sender: FDA-Public Use
  Company Number: AU-TEVA-2018-AU-905671

PATIENT
  Sex: Female

DRUGS (2)
  1. ARIPIPRAZOLE. [Suspect]
     Active Substance: ARIPIPRAZOLE
     Route: 065
  2. CLOPINE [Suspect]
     Active Substance: CLOZAPINE
     Route: 065

REACTIONS (3)
  - Psychiatric decompensation [Unknown]
  - Depressed mood [Unknown]
  - Apathy [Unknown]
